FAERS Safety Report 26027400 (Version 2)
Quarter: 2025Q4

REPORT INFORMATION
  Report Type: Spontaneous
  Country: EG (occurrence: EG)
  Receive Date: 20251111
  Receipt Date: 20251124
  Transmission Date: 20260118
  Serious: Yes (Hospitalization, Other)
  Sender: NOVO NORDISK
  Company Number: EG-NOVOPROD-1556374

PATIENT
  Sex: Male

DRUGS (6)
  1. ACTRAPID [Suspect]
     Active Substance: INSULIN HUMAN
     Indication: Diabetes mellitus
     Dosage: 55 IU, QD(15U AT MORNING /25U AT AFTERNOON /15U AT EVENING (BEFORE MEALS))
     Route: 058
     Dates: end: 20251028
  2. ALPHINTERN [Concomitant]
     Dosage: 6 TABLETS PER DAY (TWO PILLS AT A TIME, THREE TIMES A DAY)
     Route: 048
  3. DOLIPRANE [Concomitant]
     Active Substance: ACETAMINOPHEN
     Dosage: (TWICE PER DAY (TABLET) )
  4. AMBEZIM [Concomitant]
     Dosage: (ONE TABLET BEFORE AN HOUR OF LUNCH AND TAKES IT 3 TIMES PER DAY)
  5. GLUCOVANCE [GLIBENCLAMIDE;METFORMIN] [Concomitant]
     Indication: Diabetes mellitus
     Dosage: UNK (ONCE DAILY)
  6. DIABETONORM [Concomitant]
     Indication: Diabetes mellitus
     Dosage: (2/3 OF A TABLET )

REACTIONS (3)
  - Shoulder fracture [Recovered/Resolved]
  - Fall [Unknown]
  - Hyperglycaemia [Recovered/Resolved]

NARRATIVE: CASE EVENT DATE: 20251012
